FAERS Safety Report 14822912 (Version 1)
Quarter: 2018Q2

REPORT INFORMATION
  Report Type: Spontaneous
  Country: US (occurrence: US)
  Receive Date: 20180427
  Receipt Date: 20180427
  Transmission Date: 20180711
  Serious: No
  Sender: FDA-Public Use
  Company Number: US-TEVA-2018-US-873816

PATIENT

DRUGS (1)
  1. ANTABUSE [Suspect]
     Active Substance: DISULFIRAM
     Route: 065

REACTIONS (4)
  - Myalgia [Unknown]
  - Dysarthria [Unknown]
  - Vertigo [Unknown]
  - Fatigue [Unknown]
